FAERS Safety Report 9491673 (Version 1)
Quarter: 2013Q1

REPORT INFORMATION
  Report Type: Not Available
  Country: US (occurrence: US)
  Receive Date: 20121219
  Receipt Date: 20121219
  Transmission Date: 20140127
  Serious: Yes (Other)
  Sender: FDA-Public Use
  Company Number: US-LUNDBECK-DKLU1085120

PATIENT
  Sex: Male

DRUGS (5)
  1. ONFI [Suspect]
     Indication: PARTIAL SEIZURES
     Route: 048
     Dates: start: 20120623
  2. ONFI [Suspect]
     Indication: LENNOX-GASTAUT SYNDROME
  3. GABITRIL [Concomitant]
     Indication: PRODUCT USED FOR UNKNOWN INDICATION
  4. LAMICTAL [Concomitant]
     Indication: PRODUCT USED FOR UNKNOWN INDICATION
  5. DEPAKOTE [Concomitant]
     Indication: PRODUCT USED FOR UNKNOWN INDICATION

REACTIONS (1)
  - Atonic seizures [Unknown]
